FAERS Safety Report 8881286 (Version 2)
Quarter: 2013Q1

REPORT INFORMATION
  Report Type: Spontaneous
  Country: US (occurrence: US)
  Receive Date: 20121031
  Receipt Date: 20130110
  Transmission Date: 20140127
  Serious: Yes (Death)
  Sender: FDA-Public Use
  Company Number: US-INCYTE CORPORATION-2012IN002139

PATIENT
  Age: 67 Year
  Sex: Female
  Weight: 45.35 kg

DRUGS (7)
  1. JAKAFI [Suspect]
     Indication: MYELOFIBROSIS
     Dosage: 15 MG, BID
     Route: 048
     Dates: start: 201202, end: 201210
  2. JAKAFI [Suspect]
     Indication: MYELOPROLIFERATIVE DISORDER
  3. ATENOLOL [Concomitant]
  4. NORCO [Concomitant]
  5. NIFEDICAL [Concomitant]
  6. SODIUM BICARBONATE [Concomitant]
  7. ARANESP [Concomitant]
     Dosage: UNK, PRN

REACTIONS (2)
  - Cardiac arrest [Fatal]
  - Epistaxis [Unknown]
